FAERS Safety Report 7555637-8 (Version None)
Quarter: 2011Q2

REPORT INFORMATION
  Report Type: 
  Country: None (occurrence: None)
  Receive Date: 20110617
  Receipt Date: 20090331
  Transmission Date: 20111010
  Serious: Yes (Other)
  Sender: FDA-Public Use
  Company Number: PHHY2008VE06945

PATIENT
  Sex: Female

DRUGS (7)
  1. BISOPROLOL FUMARATE [Concomitant]
     Dosage: QD
  2. PLAVIX [Concomitant]
     Dosage: QD
  3. IBUPROFEN [Concomitant]
  4. NIMOTOP [Concomitant]
     Dosage: BID
  5. CORADONA [Concomitant]
  6. DIOVAN [Suspect]
     Dosage: 80 MG ONCE A DAY
     Route: 048
     Dates: start: 20060101
  7. DIOVAN [Suspect]
     Indication: HYPERTENSION
     Dosage: 40 MG ONCE A DAY
     Route: 048

REACTIONS (5)
  - ARRHYTHMIA [None]
  - CEREBROVASCULAR ACCIDENT [None]
  - TACHYCARDIA [None]
  - HYPERTENSION [None]
  - ANGINA PECTORIS [None]
